FAERS Safety Report 6382139-7 (Version None)
Quarter: 2009Q3

REPORT INFORMATION
  Report Type: 
  Country: None (occurrence: None)
  Receive Date: 20090928
  Receipt Date: 20090928
  Transmission Date: 20100115
  Serious: No
  Sender: FDA-Public Use
  Company Number: None

PATIENT
  Sex: Male
  Weight: 14.7 kg

DRUGS (1)
  1. GAMMAGARD [Suspect]
     Indication: KAWASAKI'S DISEASE
     Dosage: 30 GM X2 IV DRIP
     Route: 041
     Dates: start: 20090110, end: 20090111

REACTIONS (3)
  - CARDIAC VALVE DISEASE [None]
  - INFLAMMATION [None]
  - MYOCARDITIS [None]
